FAERS Safety Report 6718716-0 (Version None)
Quarter: 2010Q2

REPORT INFORMATION
  Report Type: 
  Country: None (occurrence: None)
  Receive Date: 20100505
  Receipt Date: 20100421
  Transmission Date: 20101027
  Serious: No
  Sender: FDA-Public Use
  Company Number: B0650655A

PATIENT
  Age: 24 Year
  Sex: Female

DRUGS (2)
  1. LEVETIRACETAM [Suspect]
     Indication: GRAND MAL CONVULSION
  2. LAMOTRIGINE [Suspect]
     Indication: GRAND MAL CONVULSION

REACTIONS (2)
  - DRUG INEFFECTIVE [None]
  - NARCOLEPSY [None]
